FAERS Safety Report 16556209 (Version 2)
Quarter: 2024Q4

REPORT INFORMATION
  Report Type: Report from Study
  Country: DE (occurrence: DE)
  Receive Date: 20190710
  Receipt Date: 20241205
  Transmission Date: 20250115
  Serious: Yes (Death, Hospitalization, Other)
  Sender: PFIZER
  Company Number: DE-AMGEN-DEUSP2016156755

PATIENT
  Sex: Female

DRUGS (37)
  1. FILGRASTIM [Suspect]
     Active Substance: FILGRASTIM
     Indication: B-cell lymphoma
     Dosage: UNK UNK, QD, 30 MIO IE (1 IN 1 D)
     Route: 058
     Dates: start: 20161031, end: 20161107
  2. FILGRASTIM [Suspect]
     Active Substance: FILGRASTIM
     Dosage: 30 MILLION IU, 1X/DAY
     Route: 058
     Dates: start: 20161127
  3. PREDNISONE [Suspect]
     Active Substance: PREDNISONE
     Indication: B-cell lymphoma
     Dosage: 100 MILLIGRAM, QD
     Route: 048
     Dates: start: 20160907
  4. LENOGRASTIM [Suspect]
     Active Substance: LENOGRASTIM
     Indication: B-cell lymphoma
     Dosage: 34 MIO IE (ONCE)
     Route: 058
     Dates: start: 20161019
  5. DOXORUBICIN [Suspect]
     Active Substance: DOXORUBICIN
     Indication: B-cell lymphoma
     Dosage: 76 MILLIGRAM, Q2WK
     Route: 042
     Dates: start: 20160927, end: 20161124
  6. VINCRISTINE [Suspect]
     Active Substance: VINCRISTINE
     Indication: B-cell lymphoma
     Dosage: FREQ:2 WK;3.16 MILLIGRAM, Q2WK
     Route: 042
     Dates: start: 20160927, end: 20161124
  7. PEGFILGRASTIM [Suspect]
     Active Substance: PEGFILGRASTIM
     Indication: B-cell lymphoma
     Dosage: 6 MG, Q2WK UNIT=NOT AVAILABLE
     Route: 058
     Dates: start: 20161014
  8. PEGFILGRASTIM [Suspect]
     Active Substance: PEGFILGRASTIM
     Dosage: UNK UNK, QD, 30 MIO IE/0,5ML, (1 IN 1 D)
     Route: 058
     Dates: start: 20161127
  9. CYCLOPHOSPHAMIDE [Suspect]
     Active Substance: CYCLOPHOSPHAMIDE
     Indication: B-cell lymphoma
     Dosage: FREQ:2 WK;1185 MILLIGRAM, Q2WK, LAST CYCLE: 28/OCT/2016
     Route: 042
     Dates: start: 20160927, end: 20161124
  10. RITUXIMAB [Suspect]
     Active Substance: RITUXIMAB
     Indication: B-cell lymphoma
     Dosage: FREQ:2 WK;590 MILLIGRAM, Q2WK
     Route: 042
     Dates: start: 20160926
  11. AMPICILLIN [Concomitant]
     Active Substance: AMPICILLIN
     Indication: Infection prophylaxis
     Dosage: 1300 MILLIGRAM, QD, DAILY DOSE: 1500 MG MILLIGRAM(S) EVERY DAY
     Route: 048
     Dates: start: 20160913
  12. TAZOBACTAM [Concomitant]
     Active Substance: TAZOBACTAM
     Indication: Oropharyngeal pain
     Dosage: 500 MILLIGRAM, TID
     Route: 042
     Dates: start: 20161019
  13. POLYETHYLENE GLYCOLS [Concomitant]
     Active Substance: POLYETHYLENE GLYCOLS
     Indication: Constipation
     Dosage: UNK, QD 1 POUCH FOR 3 DAYS)
     Dates: start: 20161117
  14. POLYETHYLENE GLYCOL [Concomitant]
     Active Substance: POLYETHYLENE GLYCOL
     Indication: Constipation
     Dosage: UNK, BID (1 POUCH)
     Route: 048
     Dates: start: 20161117
  15. AMPHOTERICIN B [Concomitant]
     Active Substance: AMPHOTERICIN B
     Indication: Infection prophylaxis
     Dosage: UNK 1 PIPETTE
     Route: 048
     Dates: start: 20161017
  16. ENOXAPARIN SODIUM [Concomitant]
     Active Substance: ENOXAPARIN SODIUM
     Indication: Thrombosis prophylaxis
     Dosage: 5 MILLILITER, QD
     Route: 058
     Dates: start: 20160907, end: 20160929
  17. ZOPICLONE [Concomitant]
     Active Substance: ZOPICLONE
     Indication: Insomnia
     Dosage: 7.5 MILLIGRAM, QD
     Dates: start: 20161107
  18. ZOPICLONE [Concomitant]
     Active Substance: ZOPICLONE
     Indication: Sleep disorder
  19. FUROSEMIDE [Concomitant]
     Active Substance: FUROSEMIDE
     Indication: Fluid retention
     Dosage: 2040 MILLIGRAM, AS NECESSARY (2040 MILLIGRAM, FOR 10 DAYS)
     Route: 042
     Dates: start: 20061116, end: 20161125
  20. METOPROLOL SUCCINATE [Concomitant]
     Active Substance: METOPROLOL SUCCINATE
     Indication: Hypertension
     Dosage: 47.5 MILLIGRAM, BID
     Route: 048
     Dates: start: 20160901
  21. CHOLECALCIFEROL [Concomitant]
     Active Substance: CHOLECALCIFEROL
     Indication: Vitamin supplementation
     Dosage: 20000 INTERNATIONAL UNIT, QWK
     Route: 048
     Dates: start: 20161027
  22. SULFAMETHOXAZOLE AND TRIMETHOPRIM [Concomitant]
     Active Substance: SULFAMETHOXAZOLE\TRIMETHOPRIM
     Indication: Infection prophylaxis
     Dosage: 960 MILLIGRAM , 1-0-1, ONLY MONDAY+THURSDAY ( 2XW)
     Route: 048
     Dates: start: 20161027
  23. PANTOPRAZOLE SODIUM [Concomitant]
     Active Substance: PANTOPRAZOLE SODIUM
     Indication: Prophylaxis against gastrointestinal ulcer
     Dosage: 40 MILLIGRAM, QD
     Dates: start: 20161107
  24. PANTOPRAZOLE SODIUM [Concomitant]
     Active Substance: PANTOPRAZOLE SODIUM
     Indication: Prophylaxis against gastrointestinal ulcer
  25. ALLOPURINOL [Concomitant]
     Active Substance: ALLOPURINOL
     Indication: Prophylaxis
     Dosage: 300 MILLIGRAM, QD
     Route: 048
     Dates: start: 20160906
  26. METOCLOPRAMIDE [Concomitant]
     Active Substance: METOCLOPRAMIDE
     Indication: Nausea
     Dosage: 10 MILLIGRAM, TID
     Route: 048
  27. DEXPANTHENOL [Concomitant]
     Active Substance: DEXPANTHENOL
     Indication: Skin ulcer
     Dosage: UNK UNK, AS NECESSARY (PRN ATLEAST BID)
     Route: 062
     Dates: start: 20161114
  28. TORSEMIDE [Concomitant]
     Active Substance: TORSEMIDE
     Indication: Cardiac failure
     Dosage: 20 MILLIGRAM, QD
     Route: 048
  29. TORSEMIDE [Concomitant]
     Active Substance: TORSEMIDE
     Dosage: 10 MG, 1X/DAY
     Route: 048
     Dates: start: 20160901
  30. ALLEVYN [Concomitant]
     Indication: Skin ulcer
     Dosage: UNK, QD (DERMAL)
     Route: 062
     Dates: start: 20161115
  31. LEVOFLOXACIN [Concomitant]
     Active Substance: LEVOFLOXACIN
     Indication: Infection prophylaxis
     Dosage: 500 MILLIGRAM, QD FOR 3 DAYS
     Route: 048
     Dates: start: 20161017, end: 20161019
  32. FOLIC ACID [Concomitant]
     Active Substance: FOLIC ACID
     Indication: Prophylaxis
     Dosage: 5 MILLIGRAM, 2 TIMES/WK
     Route: 048
     Dates: start: 20161027
  33. ACYCLOVIR [Concomitant]
     Active Substance: ACYCLOVIR
     Indication: Infection prophylaxis
     Dosage: 400 MILLIGRAM, BID
     Route: 048
     Dates: start: 20161027
  34. PIPERACILLIN [Concomitant]
     Active Substance: PIPERACILLIN
     Indication: Oropharyngeal pain
     Dosage: 12 GRAM, TID
     Route: 042
     Dates: start: 20161019
  35. RIVAROXABAN [Concomitant]
     Active Substance: RIVAROXABAN
     Indication: Oedema peripheral
     Dosage: 15 MILLIGRAM, QD
     Route: 048
     Dates: start: 20161012
  36. MIRTAZAPINE [Concomitant]
     Active Substance: MIRTAZAPINE
     Indication: Depression
     Dosage: 15 MILLIGRAM, QD
     Route: 048
     Dates: start: 20160901
  37. DULOXETINE [Concomitant]
     Active Substance: DULOXETINE
     Indication: Depression
     Dosage: 90 MILLIGRAM, QD
     Route: 048
     Dates: start: 20160901

REACTIONS (15)
  - Pneumonia [Fatal]
  - Gait inability [Unknown]
  - Loss of consciousness [Unknown]
  - Asthenia [Unknown]
  - Fatigue [Not Recovered/Not Resolved]
  - Dysphagia [Not Recovered/Not Resolved]
  - Thrombocytopenia [Recovered/Resolved]
  - Streptococcal infection [Recovered/Resolved]
  - Hypokalaemia [Recovered/Resolved]
  - Weight decreased [Not Recovered/Not Resolved]
  - Leukopenia [Recovered/Resolved]
  - Anaemia [Recovered/Resolved]
  - Spinal fracture [Not Recovered/Not Resolved]
  - Constipation [Recovered/Resolved]
  - Dehydration [Recovered/Resolved]

NARRATIVE: CASE EVENT DATE: 20161001
